FAERS Safety Report 9773561 (Version 1)
Quarter: 2013Q4

REPORT INFORMATION
  Report Type: Spontaneous
  Country: JP (occurrence: None)
  Receive Date: 20131217
  Receipt Date: 20131217
  Transmission Date: 20140711
  Serious: Yes (Hospitalization)
  Sender: FDA-Public Use
  Company Number: FK201305315

PATIENT
  Age: 79 Year
  Sex: Female

DRUGS (4)
  1. DEXAMETHASONE [Suspect]
     Indication: PLASMA CELL MYELOMA
     Dates: start: 20080320
  2. BORTEZOMIB (BORTEZOMIB) [Suspect]
     Indication: PLASMA CELL MYELOMA
     Dates: start: 20080317
  3. MELPHALAN [Concomitant]
  4. PREDNISOLONE [Concomitant]

REACTIONS (2)
  - Myocardial infarction [None]
  - Myocardial ischaemia [None]
